FAERS Safety Report 4476679-5 (Version None)
Quarter: 2004Q4

REPORT INFORMATION
  Report Type: 
  Country: None (occurrence: None)
  Receive Date: 20041015
  Receipt Date: 20041015
  Transmission Date: 20050328
  Serious: Yes (Hospitalization)
  Sender: FDA-Public Use
  Company Number: None

PATIENT
  Age: 53 Year
  Sex: Male
  Weight: 91.6 kg

DRUGS (14)
  1. ATENOLOL [Suspect]
     Indication: HYPERTENSION
     Dosage: 25 MG QD ORAL
     Route: 048
  2. AMITRIPTYLINE HCL [Concomitant]
  3. INSULIN GLARCINE [Concomitant]
  4. GEMFIBROZIL [Concomitant]
  5. VALSARTAN [Concomitant]
  6. TERAZOSIN HCL [Concomitant]
  7. ASPIRIN [Concomitant]
  8. NITROGLYCERIN [Concomitant]
  9. ISOSORBIDE DINITRATE [Concomitant]
  10. ATORVASTATIN CALCIUM [Concomitant]
  11. CHLORTHALIDONE [Concomitant]
  12. FOSINOPRIL SODIUM [Concomitant]
  13. CITALOPRAM [Concomitant]
  14. AMLODIPINE [Concomitant]

REACTIONS (5)
  - ASTHENIA [None]
  - BRADYCARDIA [None]
  - DIZZINESS [None]
  - ORTHOSTATIC HYPOTENSION [None]
  - VISION BLURRED [None]
